FAERS Safety Report 5191692-0 (Version None)
Quarter: 2006Q4

REPORT INFORMATION
  Report Type: 
  Country: None (occurrence: None)
  Receive Date: 20061226
  Receipt Date: 20061027
  Transmission Date: 20070319
  Serious: Yes (Disabling, Other)
  Sender: FDA-Public Use
  Company Number: GB-MERCK-0610GBR00541

PATIENT
  Age: 72 Year
  Sex: Female

DRUGS (9)
  1. ZOCOR [Suspect]
     Route: 048
     Dates: start: 20060714, end: 20060725
  2. DILTIAZEM HYDROCHLORIDE [Suspect]
     Route: 048
     Dates: start: 20060714, end: 20060729
  3. AMLODIPINE BESYLATE [Concomitant]
     Route: 048
     Dates: start: 20060328, end: 20060713
  4. LACTULOSE [Concomitant]
     Route: 048
     Dates: start: 20060719
  5. OMEPRAZOLE [Concomitant]
     Route: 048
     Dates: start: 20010501
  6. ALBUTEROL [Concomitant]
     Dates: start: 19910812
  7. FLUTICASONE PROPIONATE AND SALMETEROL XINAFOATE [Concomitant]
     Dates: start: 20060601
  8. TIOTROPIUM BROMIDE [Concomitant]
     Dates: start: 20041218
  9. ASPIRIN [Concomitant]
     Indication: ANGINA PECTORIS
     Route: 065

REACTIONS (6)
  - EOSINOPHILIA [None]
  - HYPERSENSITIVITY [None]
  - MALAISE [None]
  - PURPURA [None]
  - RASH ERYTHEMATOUS [None]
  - SKIN LESION [None]
